FAERS Safety Report 22226555 (Version 1)
Quarter: 2023Q2

REPORT INFORMATION
  Report Type: Spontaneous
  Country: US (occurrence: US)
  Receive Date: 20230419
  Receipt Date: 20230419
  Transmission Date: 20230722
  Serious: No
  Sender: FDA-Public Use
  Company Number: US-SA-SAC20230417000305

PATIENT
  Age: 80 Year
  Sex: Female

DRUGS (1)
  1. LUMIZYME [Suspect]
     Active Substance: ALGLUCOSIDASE ALFA
     Dosage: UNK
     Route: 065

REACTIONS (3)
  - Urinary hexose tetrasaccharide increased [Unknown]
  - Drug specific antibody present [Unknown]
  - Blood immunoglobulin G increased [Unknown]

NARRATIVE: CASE EVENT DATE: 20220106
